FAERS Safety Report 16914240 (Version 1)
Quarter: 2019Q4

REPORT INFORMATION
  Report Type: Spontaneous
  Country: US (occurrence: US)
  Receive Date: 20191014
  Receipt Date: 20191014
  Transmission Date: 20200122
  Serious: No
  Sender: FDA-Public Use
  Company Number: US-PFIZER INC-2019324646

PATIENT
  Age: 42 Year
  Sex: Male

DRUGS (2)
  1. LYRICA [Suspect]
     Active Substance: PREGABALIN
     Dosage: 150 MG, UNK
  2. LYRICA [Suspect]
     Active Substance: PREGABALIN
     Dosage: 150 UG, 2X/DAY
     Route: 048

REACTIONS (5)
  - Poor quality product administered [Unknown]
  - Anger [Unknown]
  - Product quality issue [Unknown]
  - Product prescribing error [Unknown]
  - Feeling abnormal [Unknown]
